FAERS Safety Report 9990487 (Version 2)
Quarter: 2014Q1

REPORT INFORMATION
  Report Type: Spontaneous
  Country: US (occurrence: US)
  Receive Date: 20140310
  Receipt Date: 20140327
  Transmission Date: 20141002
  Serious: No
  Sender: FDA-Public Use
  Company Number: US-PFIZER INC-2014063907

PATIENT
  Age: 70 Year
  Sex: Female

DRUGS (6)
  1. BOSULIF [Suspect]
     Indication: CHRONIC MYELOID LEUKAEMIA
     Dosage: 100 MG, UNK
     Dates: start: 20140304
  2. LOSARTAN POTASSIUM [Concomitant]
     Dosage: UNK
  3. LORATADINE [Concomitant]
     Dosage: UNK
  4. SYNTHROID [Concomitant]
     Dosage: UNK
  5. ESTRADIOL [Concomitant]
     Dosage: UNK
  6. KLOR-CON [Concomitant]
     Dosage: UNK

REACTIONS (3)
  - Nausea [Unknown]
  - Fatigue [Unknown]
  - Headache [Unknown]
